FAERS Safety Report 4698534-8 (Version None)
Quarter: 2005Q2

REPORT INFORMATION
  Report Type: 
  Country: None (occurrence: None)
  Receive Date: 20050622
  Receipt Date: 20050614
  Transmission Date: 20051028
  Serious: Yes (Other)
  Sender: FDA-Public Use
  Company Number: 2005081488

PATIENT
  Sex: Female
  Weight: 85.7298 kg

DRUGS (9)
  1. CELEBREX [Suspect]
     Indication: OSTEOARTHRITIS
     Dosage: 400 MG (200 MG, 2 IN 1 D) ORAL
     Route: 048
  2. BEXTRA [Suspect]
     Indication: OSTEOARTHRITIS
  3. TRIAMTERENE [Concomitant]
  4. HYDROCHLOROTHIAZIDE [Concomitant]
  5. DARVOCET-N (DEXTROPOXYPHENE NAPSILATE, PARACETAMOL) [Concomitant]
  6. DEMEROL [Concomitant]
  7. NEXIUM [Concomitant]
  8. OXCARBAMAZEPINE [Concomitant]
  9. TIGAN [Concomitant]

REACTIONS (8)
  - BACK PAIN [None]
  - DIFFICULTY IN WALKING [None]
  - DRUG EFFECT DECREASED [None]
  - EMOTIONAL DISTRESS [None]
  - FAILURE OF IMPLANT [None]
  - FALL [None]
  - KNEE ARTHROPLASTY [None]
  - SURGICAL PROCEDURE REPEATED [None]
